FAERS Safety Report 12763436 (Version 1)
Quarter: 2016Q3

REPORT INFORMATION
  Report Type: Report from Study
  Country: US (occurrence: US)
  Receive Date: 20160920
  Receipt Date: 20160920
  Transmission Date: 20161109
  Serious: Yes (Death, Other)
  Sender: FDA-Public Use
  Company Number: US-BAYER-2016-167757

PATIENT
  Age: 63 Year
  Sex: Male
  Weight: 105.21 kg

DRUGS (1)
  1. NEXAVAR [Suspect]
     Active Substance: SORAFENIB
     Indication: HEPATIC CANCER
     Dosage: 200 MG, BID
     Route: 048
     Dates: start: 20160707

REACTIONS (2)
  - Death [Fatal]
  - Poisoning [None]

NARRATIVE: CASE EVENT DATE: 2016
